FAERS Safety Report 17811389 (Version 1)
Quarter: 2020Q2

REPORT INFORMATION
  Report Type: Spontaneous
  Country: US (occurrence: US)
  Receive Date: 20200520
  Receipt Date: 20200520
  Transmission Date: 20200714
  Serious: No
  Sender: FDA-Public Use
  Company Number: None

PATIENT
  Sex: Female

DRUGS (1)
  1. PROLIA [Suspect]
     Active Substance: DENOSUMAB
     Indication: OSTEOPOROTIC FRACTURE
     Dosage: ?          OTHER FREQUENCY:EVERY 180 DAYS;?
     Route: 058
     Dates: start: 20191201

REACTIONS (3)
  - Osteoarthritis [None]
  - Pain in jaw [None]
  - Ear infection [None]
